FAERS Safety Report 7573675-6 (Version None)
Quarter: 2011Q2

REPORT INFORMATION
  Report Type: 
  Country: None (occurrence: None)
  Receive Date: 20110627
  Receipt Date: 20110617
  Transmission Date: 20111010
  Serious: Yes (Hospitalization, Other)
  Sender: FDA-Public Use
  Company Number: US-ROCHE-775961

PATIENT
  Sex: Female

DRUGS (9)
  1. PEGINTERFERON ALFA-2A [Suspect]
     Indication: HEPATITIS C
     Dosage: FORM: PRE-FILLED SYRINGE, WEEK 25 OF THERAPY
     Route: 065
     Dates: start: 20101210
  2. FOSAMAX [Concomitant]
  3. NEURONTIN [Concomitant]
  4. PRISTIQ [Concomitant]
  5. CLONAZEPAM [Suspect]
     Route: 065
  6. LISINOPRIL [Concomitant]
  7. HYDROCODONE [Concomitant]
  8. RIBAVARIN [Suspect]
     Indication: HEPATITIS C
     Dosage: WEEK 25 OF THERAPY
     Route: 065
     Dates: start: 20101210
  9. ZANTAC [Concomitant]

REACTIONS (18)
  - CEREBROVASCULAR ACCIDENT [None]
  - MALAISE [None]
  - DECREASED APPETITE [None]
  - BLOOD GLUCOSE DECREASED [None]
  - ANAEMIA [None]
  - RED BLOOD CELL COUNT DECREASED [None]
  - PNEUMONIA [None]
  - TONGUE DISORDER [None]
  - LUNG INFECTION [None]
  - CHOKING [None]
  - URINARY INCONTINENCE [None]
  - WHITE BLOOD CELL COUNT DECREASED [None]
  - THROAT IRRITATION [None]
  - STOMATITIS [None]
  - ASTHENIA [None]
  - CHEST PAIN [None]
  - GLOSSODYNIA [None]
  - INTRACRANIAL ANEURYSM [None]
